FAERS Safety Report 25908248 (Version 1)
Quarter: 2025Q4

REPORT INFORMATION
  Report Type: Spontaneous
  Country: CN (occurrence: CN)
  Receive Date: 20251010
  Receipt Date: 20251010
  Transmission Date: 20260117
  Serious: Yes (Hospitalization, Other)
  Sender: PFIZER
  Company Number: CN-PFIZER INC-PV202500119417

PATIENT
  Age: 80 Year
  Sex: Male

DRUGS (7)
  1. LINEZOLID [Suspect]
     Active Substance: LINEZOLID
     Indication: Pneumonia viral
     Dosage: UNK
     Route: 042
  2. LINEZOLID [Suspect]
     Active Substance: LINEZOLID
     Indication: Pneumonia bacterial
  3. MEROPENEM [Suspect]
     Active Substance: MEROPENEM
     Indication: Pneumonia viral
     Dosage: UNK
     Route: 042
  4. MEROPENEM [Suspect]
     Active Substance: MEROPENEM
     Indication: Pneumonia bacterial
  5. OSELTAMIVIR [Concomitant]
     Active Substance: OSELTAMIVIR
     Indication: Pneumonia viral
     Dosage: UNK
     Route: 042
  6. OSELTAMIVIR [Concomitant]
     Active Substance: OSELTAMIVIR
     Indication: Pneumonia bacterial
  7. METHYLPREDNISOLONE SODIUM SUCCINATE [Concomitant]
     Active Substance: METHYLPREDNISOLONE SODIUM SUCCINATE
     Dosage: UNK
     Route: 042

REACTIONS (1)
  - Jarisch-Herxheimer reaction [Recovered/Resolved]
